FAERS Safety Report 12476843 (Version 2)
Quarter: 2016Q2

REPORT INFORMATION
  Report Type: Spontaneous
  Country: JP (occurrence: JP)
  Receive Date: 20160617
  Receipt Date: 20160617
  Transmission Date: 20160815
  Serious: Yes (Congenital Anomaly, Other)
  Sender: FDA-Public Use
  Company Number: JP-ACTAVIS-2016-12842

PATIENT

DRUGS (4)
  1. CARBAMAZEPINE (UNKNOWN) [Suspect]
     Active Substance: CARBAMAZEPINE
     Indication: EPILEPSY
     Dosage: 1000 MG, DAILY
     Route: 064
  2. PRIMIDONE (WATSON LABORATORIES) [Suspect]
     Active Substance: PRIMIDONE
     Indication: EPILEPSY
     Dosage: 800 MG, DAILY
     Route: 064
  3. PHENYTOIN (AMALLC) [Suspect]
     Active Substance: PHENYTOIN
     Indication: EPILEPSY
     Dosage: 50 MG, DAILY
     Route: 064
  4. METHYLPHENOBARBITAL [Suspect]
     Active Substance: MEPHOBARBITAL
     Indication: EPILEPSY
     Dosage: 200 MG, DAILY
     Route: 064

REACTIONS (2)
  - Cleft lip [Unknown]
  - Foetal exposure during pregnancy [Unknown]
